FAERS Safety Report 7523204-8 (Version None)
Quarter: 2011Q2

REPORT INFORMATION
  Report Type: 
  Country: None (occurrence: None)
  Receive Date: 20110603
  Receipt Date: 20110527
  Transmission Date: 20111010
  Serious: Yes (Hospitalization)
  Sender: FDA-Public Use
  Company Number: CH-PFIZER INC-2011114691

PATIENT
  Age: 33 Year
  Sex: Male
  Weight: 71.5 kg

DRUGS (12)
  1. MINALGIN [Concomitant]
     Dosage: 4000 MG PER DAY
     Route: 048
  2. METHADONE [Suspect]
     Dosage: 100 MG PER DAY
     Route: 048
     Dates: start: 20080101, end: 20101102
  3. TIZANIDINE HCL [Concomitant]
     Dosage: 4 MG PER DAY
     Route: 048
  4. EFFEXOR [Suspect]
     Dosage: 150 MG PER DAY
     Route: 048
     Dates: end: 20101026
  5. XEFO [Concomitant]
     Dosage: 16 MG PER DAY
     Route: 048
  6. LYRICA [Suspect]
     Dosage: 50 MG, 1X/DAY
     Route: 048
     Dates: start: 20101027, end: 20101102
  7. ARCOXIA [Concomitant]
     Dosage: 120 MG PER DAY
     Route: 048
  8. TRAMADOL HCL [Suspect]
     Dosage: 300 MG PER DAY
     Route: 048
     Dates: end: 20101103
  9. SEROQUEL [Concomitant]
     Dosage: 100 MG PER DAY
     Route: 048
     Dates: end: 20101116
  10. ACETAMINOPHEN [Concomitant]
     Dosage: 1000 MG PER DAY
     Route: 048
  11. EFFEXOR [Suspect]
     Dosage: 300 MG PER DAY
     Route: 048
     Dates: start: 20101027, end: 20101103
  12. LYRICA [Suspect]
     Dosage: 75 MG, 1X/DAY
     Route: 048
     Dates: start: 20101103

REACTIONS (2)
  - DRUG INTERACTION [None]
  - SEROTONIN SYNDROME [None]
